FAERS Safety Report 13499774 (Version 10)
Quarter: 2021Q3

REPORT INFORMATION
  Report Type: Report from Study
  Country: US (occurrence: US)
  Receive Date: 20170501
  Receipt Date: 20210818
  Transmission Date: 20211014
  Serious: Yes (Other)
  Sender: FDA-Public Use
  Company Number: US-PFIZER INC-2017140331

PATIENT
  Age: 53 Year
  Sex: Female

DRUGS (6)
  1. IBRANCE [Suspect]
     Active Substance: PALBOCICLIB
     Dosage: 100 MG, DAILY
     Route: 048
     Dates: start: 20170617, end: 2020
  2. FASLODEX [Concomitant]
     Active Substance: FULVESTRANT
     Dosage: UNK
  3. IBRANCE [Suspect]
     Active Substance: PALBOCICLIB
     Dosage: 100 MG, CYCLIC (DAILY 21 DAYS ON AND 7 DAYS OFF)
     Route: 048
     Dates: start: 2016
  4. IBRANCE [Suspect]
     Active Substance: PALBOCICLIB
     Indication: BREAST CANCER FEMALE
     Dosage: 125 MG, CYCLIC (DAILY 21 DAYS ON AND 7 DAYS OFF)
     Route: 048
     Dates: start: 2015
  5. IBRANCE [Suspect]
     Active Substance: PALBOCICLIB
     Dosage: 100 MG, CYCLIC (DAILY 21 DAYS ON AND 7 DAYS OFF)
     Route: 048
     Dates: start: 202104
  6. IBRANCE [Suspect]
     Active Substance: PALBOCICLIB
     Dosage: 125 MG, CYCLIC (DAILY FOR DAY 1?DAY 21 FOLLOWED BY 7 DAYS OFF EVERY 28 DAYS)
     Route: 048
     Dates: start: 20170325, end: 20170616

REACTIONS (16)
  - Fatigue [Not Recovered/Not Resolved]
  - Myelosuppression [Unknown]
  - Neutropenia [Unknown]
  - Muscle spasms [Unknown]
  - Nausea [Not Recovered/Not Resolved]
  - Oropharyngeal pain [Recovered/Resolved]
  - Alopecia [Recovering/Resolving]
  - Weight increased [Recovering/Resolving]
  - Hypotension [Recovering/Resolving]
  - White blood cell count decreased [Not Recovered/Not Resolved]
  - Candida infection [Unknown]
  - Neoplasm progression [Unknown]
  - Headache [Not Recovered/Not Resolved]
  - Anaemia [Unknown]
  - Chromaturia [Unknown]
  - Back pain [Unknown]

NARRATIVE: CASE EVENT DATE: 2017
